FAERS Safety Report 8122324-7 (Version None)
Quarter: 2012Q1

REPORT INFORMATION
  Report Type: 
  Country: None (occurrence: None)
  Receive Date: 20120206
  Receipt Date: 20120118
  Transmission Date: 20120608
  Serious: Yes (Hospitalization, Disabling)
  Sender: FDA-Public Use
  Company Number: 20110427

PATIENT
  Age: 48 Year
  Sex: Male

DRUGS (6)
  1. DEXAMETHASONE [Suspect]
     Indication: BRAIN OEDEMA
     Dosage: VARIABLE DOSING DAILY ORAL
     Route: 048
     Dates: start: 20080101, end: 20110401
  2. VITAMIN TAB [Concomitant]
  3. LISINOPRIL [Concomitant]
  4. LAMICTAL [Concomitant]
  5. DEXAMETHASONE SODIUM PHOSPHATE [Suspect]
     Indication: BRAIN OEDEMA
     Dosage: UNKNOWN INTRAVENOUS
     Route: 042
     Dates: start: 20080101, end: 20110401
  6. PENTOXIFYLLINE CR [Concomitant]

REACTIONS (14)
  - CONVULSION [None]
  - CEREBROVASCULAR ACCIDENT [None]
  - INCREASED APPETITE [None]
  - WEIGHT INCREASED [None]
  - CEREBRAL HAEMORRHAGE [None]
  - HYPOAESTHESIA [None]
  - PAIN [None]
  - FATIGUE [None]
  - ARTHRALGIA [None]
  - ABNORMAL LOSS OF WEIGHT [None]
  - ARTERIOVENOUS MALFORMATION [None]
  - MYALGIA [None]
  - GENERALISED OEDEMA [None]
  - MOOD SWINGS [None]
